FAERS Safety Report 10688856 (Version 1)
Quarter: 2015Q1

REPORT INFORMATION
  Report Type: Report from Study
  Country: TR (occurrence: TR)
  Receive Date: 20150103
  Receipt Date: 20150103
  Transmission Date: 20150720
  Serious: Yes (Other)
  Sender: FDA-Public Use
  Company Number: TR-BRISTOL-MYERS SQUIBB COMPANY-BMS-2014-005252

PATIENT
  Sex: Female

DRUGS (3)
  1. EXENATIDE [Suspect]
     Active Substance: EXENATIDE
     Indication: TYPE 2 DIABETES MELLITUS
     Dosage: 10 ?G, BID
     Route: 065
     Dates: start: 20140717, end: 201411
  2. GLIFOR [Concomitant]
     Active Substance: METFORMIN HYDROCHLORIDE
  3. INSULIN [Concomitant]
     Active Substance: INSULIN NOS

REACTIONS (5)
  - Dyspnoea [Unknown]
  - Gastric disorder [Unknown]
  - Breast cancer [Unknown]
  - Wound [Unknown]
  - Pharyngeal oedema [Unknown]
